FAERS Safety Report 16552563 (Version 1)
Quarter: 2019Q3

REPORT INFORMATION
  Report Type: Spontaneous
  Country: US (occurrence: US)
  Receive Date: 20190710
  Receipt Date: 20190710
  Transmission Date: 20191004
  Serious: No
  Sender: FDA-Public Use
  Company Number: US-PFIZER INC-2019289473

PATIENT

DRUGS (1)
  1. HYDROCORTISONE. [Suspect]
     Active Substance: HYDROCORTISONE
     Dosage: UNK

REACTIONS (12)
  - Aggression [Unknown]
  - Irritability [Unknown]
  - Bacterial infection [Unknown]
  - Feeling abnormal [Unknown]
  - Depression [Unknown]
  - Fluid retention [Unknown]
  - Insomnia [Unknown]
  - Fatigue [Unknown]
  - Impatience [Unknown]
  - Mood altered [Unknown]
  - Asthenia [Unknown]
  - Personality change [Unknown]
